FAERS Safety Report 5765026-4 (Version None)
Quarter: 2008Q2

REPORT INFORMATION
  Report Type: 
  Country: None (occurrence: None)
  Receive Date: 20080602
  Receipt Date: 20070703
  Transmission Date: 20081010
  Serious: Yes (Death)
  Sender: FDA-Public Use
  Company Number: 2007PV000027

PATIENT
  Age: 48 Year
  Sex: Male
  Weight: 83.4 kg

DRUGS (8)
  1. DEPOCYT [Suspect]
     Indication: METASTATIC NEOPLASM
     Dosage: 50 MG; 1X; ED
     Route: 008
     Dates: start: 20070629, end: 20070629
  2. ATENOLOL [Concomitant]
  3. DECADRON [Concomitant]
  4. LOTREL [Concomitant]
  5. CALCIUM CARBONATE [Concomitant]
  6. SENOKOT [Concomitant]
  7. MORPHINE [Concomitant]
  8. PERCOCET [Concomitant]

REACTIONS (2)
  - CONVULSION [None]
  - DEATH [None]
